FAERS Safety Report 17963580 (Version 7)
Quarter: 2022Q1

REPORT INFORMATION
  Report Type: Report from Study
  Country: AU (occurrence: AU)
  Receive Date: 20200630
  Receipt Date: 20220328
  Transmission Date: 20220423
  Serious: Yes (Other)
  Sender: FDA-Public Use
  Company Number: AU-PFIZER INC-2020240584

PATIENT
  Age: 81 Year
  Sex: Male
  Weight: 74.7 kg

DRUGS (14)
  1. TAFAMIDIS [Suspect]
     Active Substance: TAFAMIDIS
     Indication: Cardiac amyloidosis
     Dosage: 61 MG, ONCE A DAY
     Route: 048
     Dates: start: 20200403, end: 20200619
  2. FUROSEMIDE [Concomitant]
     Active Substance: FUROSEMIDE
     Indication: Cardiac failure
     Dosage: 80 MG, 2X/DAY
     Route: 048
     Dates: start: 2018
  3. FUROSEMIDE [Concomitant]
     Active Substance: FUROSEMIDE
     Dosage: UNK
     Dates: start: 20200526
  4. SPIRONOLACTONE [Concomitant]
     Active Substance: SPIRONOLACTONE
     Indication: Cardiac failure
     Dosage: 25 MG, DAILY
     Route: 048
     Dates: start: 20200319
  5. SPIRONOLACTONE [Concomitant]
     Active Substance: SPIRONOLACTONE
     Dosage: UNK
     Dates: start: 20200522, end: 20200531
  6. ALLOPURINOL [Concomitant]
     Active Substance: ALLOPURINOL
     Indication: Gout
     Dosage: 150 MG, DAILY
     Route: 048
     Dates: start: 2018
  7. ALLOPURINOL [Concomitant]
     Active Substance: ALLOPURINOL
     Dosage: UNK
     Dates: start: 20200518
  8. MOVICOL [Concomitant]
     Active Substance: POLYETHYLENE GLYCOL 3350\POTASSIUM CHLORIDE\SODIUM BICARBONATE\SODIUM CHLORIDE
     Indication: Constipation
     Dosage: 1 SACHET, AS NEEDED
     Route: 048
     Dates: start: 2018
  9. ANUSOL [BISMUTH OXIDE;MYROXYLON BALSAMUM VAR. PEREIRAE BALSAM;ZINC OXI [Concomitant]
     Indication: Haemorrhoids
     Dosage: 1 APPLICATION, AS NEEDED
     Route: 061
     Dates: start: 2018
  10. BETAMETHASONE [Concomitant]
     Active Substance: BETAMETHASONE
     Indication: Liver disorder
     Dosage: 1 APPLICATION, AS NEEDED
     Route: 061
     Dates: start: 2018
  11. ACTILAX [LACTULOSE] [Concomitant]
     Indication: Constipation
     Dosage: 15 ML, DAILY
     Route: 048
     Dates: start: 20200404
  12. ACTILAX [LACTULOSE] [Concomitant]
     Dosage: UNK
     Dates: start: 20200527
  13. NEBIVOLOL [Concomitant]
     Active Substance: NEBIVOLOL
     Indication: Hypertension
     Dosage: 5 MG, DAILY
     Route: 048
     Dates: start: 2017
  14. NEBIVOLOL [Concomitant]
     Active Substance: NEBIVOLOL
     Dosage: UNK
     Dates: start: 20200517

REACTIONS (2)
  - Immune thrombocytopenia [Not Recovered/Not Resolved]
  - Condition aggravated [Not Recovered/Not Resolved]

NARRATIVE: CASE EVENT DATE: 20200618
